FAERS Safety Report 8161206-1 (Version None)
Quarter: 2012Q1

REPORT INFORMATION
  Report Type: 
  Country: None (occurrence: None)
  Receive Date: 20120103
  Receipt Date: 20111018
  Transmission Date: 20120608
  Serious: No
  Sender: FDA-Public Use
  Company Number: AE-2011-001554

PATIENT
  Age: 59 Year
  Sex: Female
  Weight: 110.2241 kg

DRUGS (3)
  1. INCIVEK [Suspect]
     Dosage: 2250 MG (750 MG, 1 IN 8 HR), ORAL
     Route: 048
     Dates: start: 20110819
  2. PEGINTERFERON (PEGINTERFERON ALFA-2A) [Concomitant]
  3. RIBAVIRIN [Concomitant]

REACTIONS (4)
  - DYSPNOEA [None]
  - CHEST DISCOMFORT [None]
  - PULMONARY CONGESTION [None]
  - PRODUCTIVE COUGH [None]
